FAERS Safety Report 6463728-8 (Version None)
Quarter: 2009Q4

REPORT INFORMATION
  Report Type: 
  Country: None (occurrence: None)
  Receive Date: 20091201
  Receipt Date: 20091125
  Transmission Date: 20100525
  Serious: Yes (Other)
  Sender: FDA-Public Use
  Company Number: IT-WYE-G04972909

PATIENT
  Sex: Female
  Weight: 70 kg

DRUGS (4)
  1. TEMSIROLIMUS [Suspect]
     Indication: ACUTE MYELOID LEUKAEMIA
     Dosage: 25 MG
     Route: 042
     Dates: start: 20091107, end: 20091114
  2. AVELOX [Concomitant]
     Indication: ANTIBIOTIC PROPHYLAXIS
     Route: 048
     Dates: start: 20091028
  3. POSACONAZOLE [Concomitant]
     Indication: ANTIFUNGAL PROPHYLAXIS
     Route: 048
     Dates: start: 20091116
  4. CLOFARABINE [Suspect]
     Indication: ACUTE MYELOID LEUKAEMIA
     Dosage: 30 MG
     Route: 042
     Dates: start: 20091107, end: 20091111

REACTIONS (1)
  - ATAXIA [None]
